FAERS Safety Report 5177608-1 (Version None)
Quarter: 2006Q4

REPORT INFORMATION
  Report Type: 
  Country: None (occurrence: None)
  Receive Date: 20061218
  Receipt Date: 20060223
  Transmission Date: 20070319
  Serious: Yes (Hospitalization, Other)
  Sender: FDA-Public Use
  Company Number: US-AMGEN-STX170093

PATIENT
  Sex: Male
  Weight: 104.4 kg

DRUGS (12)
  1. ENBREL [Suspect]
     Indication: PSORIASIS
     Route: 058
     Dates: start: 20040901
  2. ZANTAC [Concomitant]
     Dates: start: 19960101
  3. ALLOPURINOL [Concomitant]
     Dates: start: 19910101
  4. AVAPRO [Concomitant]
     Dates: start: 20050701
  5. AMILORIDE HYDROCHLORIDE/HYDROCHLOROTHIAZIDE [Concomitant]
     Dates: start: 20030101
  6. TOPROL-XL [Concomitant]
     Dates: start: 20051102
  7. AVANDIA [Concomitant]
     Dates: start: 20040101
  8. ASPIRIN [Concomitant]
     Dates: start: 20040101
  9. HYDROXYZINE [Concomitant]
     Dates: start: 20040101
  10. LORATADINE [Concomitant]
     Dates: start: 20040101
  11. LEXAPRO [Concomitant]
     Dates: start: 20050101
  12. VYTORIN [Concomitant]
     Dates: start: 20050519

REACTIONS (1)
  - PROSTATE CANCER [None]
